FAERS Safety Report 20827501 (Version 1)
Quarter: 2022Q2

REPORT INFORMATION
  Report Type: Spontaneous
  Country: US (occurrence: None)
  Receive Date: 20220513
  Receipt Date: 20220513
  Transmission Date: 20220721
  Serious: No
  Sender: FDA-Public Use
  Company Number: 2022A177552

PATIENT
  Age: 27298 Day
  Sex: Male

DRUGS (27)
  1. CALQUENCE [Suspect]
     Active Substance: ACALABRUTINIB
     Route: 048
     Dates: end: 20210319
  2. GAZYVA [Concomitant]
     Active Substance: OBINUTUZUMAB
  3. HUMAN IMMUNOGLOBULIN G [Concomitant]
     Active Substance: HUMAN IMMUNOGLOBULIN G
  4. ACYCLOVIR [Concomitant]
     Active Substance: ACYCLOVIR
  5. ALLOPURINOL [Concomitant]
     Active Substance: ALLOPURINOL
  6. FLECAINIDE ACETATE [Concomitant]
     Active Substance: FLECAINIDE ACETATE
  7. FLOMAX [Concomitant]
     Active Substance: TAMSULOSIN HYDROCHLORIDE
  8. PRAVASTATIN SODIUM [Concomitant]
     Active Substance: PRAVASTATIN SODIUM
  9. PROBIOTICS NOS [Concomitant]
     Active Substance: PROBIOTICS NOS
  10. SINGULAIR [Concomitant]
     Active Substance: MONTELUKAST SODIUM
  11. VITAMIN B12 [Concomitant]
     Active Substance: CYANOCOBALAMIN
  12. VITAMIN C [Concomitant]
     Active Substance: ASCORBIC ACID
  13. VITAMIN D [Concomitant]
     Active Substance: VITAMIN D NOS
  14. RITUXIMAB [Concomitant]
     Active Substance: RITUXIMAB
  15. BENDAMUSTINE HYDROCHLORIDE [Concomitant]
     Active Substance: BENDAMUSTINE HYDROCHLORIDE
  16. VENCLEXTA [Concomitant]
     Active Substance: VENETOCLAX
  17. AZITHROMYCIN [Concomitant]
     Active Substance: AZITHROMYCIN
  18. CALCIUM CAETATE [Concomitant]
  19. CIPROFLOXACIN HCG [Concomitant]
  20. CLINDAMYCIN HYDROCHLORIDE [Concomitant]
     Active Substance: CLINDAMYCIN HYDROCHLORIDE
  21. FAMOTIDINE [Concomitant]
     Active Substance: FAMOTIDINE
  22. GAMMEGARD [Concomitant]
  23. GEANISATRON HCL [Concomitant]
  24. FLUZONE [Concomitant]
     Active Substance: INFLUENZA A VIRUS A/CALIFORNIA/7/2009 X-179A (H1N1) ANTIGEN (FORMALDEHYDE INACTIVATED)\INFLUENZA A V
  25. LISINOPRIL [Concomitant]
     Active Substance: LISINOPRIL
  26. PEGFILGRASTIM [Concomitant]
     Active Substance: PEGFILGRASTIM
  27. PENTAMIDINE ISETHIONATE [Concomitant]
     Active Substance: PENTAMIDINE ISETHIONATE

REACTIONS (2)
  - Pneumonia [Unknown]
  - Malaise [Unknown]

NARRATIVE: CASE EVENT DATE: 20210319
